FAERS Safety Report 6717958-8 (Version None)
Quarter: 2010Q2

REPORT INFORMATION
  Report Type: 
  Country: None (occurrence: None)
  Receive Date: 20100510
  Receipt Date: 20100427
  Transmission Date: 20101027
  Serious: Yes (Hospitalization, Other)
  Sender: FDA-Public Use
  Company Number: PHHY2010FR26367

PATIENT
  Age: 76 Year
  Sex: Male

DRUGS (1)
  1. RASILEZ [Suspect]
     Dosage: 300 MG
     Dates: start: 20100311

REACTIONS (4)
  - ARRHYTHMIA [None]
  - BRONCHOPNEUMONIA [None]
  - CARDIAC FAILURE [None]
  - GENERAL PHYSICAL CONDITION ABNORMAL [None]
